FAERS Safety Report 8306411-6 (Version None)
Quarter: 2012Q2

REPORT INFORMATION
  Report Type: 
  Country: None (occurrence: None)
  Receive Date: 20120423
  Receipt Date: 20120407
  Transmission Date: 20120825
  Serious: Yes (Other)
  Sender: FDA-Public Use
  Company Number: PHHY2012BR031000

PATIENT
  Sex: Female

DRUGS (2)
  1. ONBREZ [Suspect]
     Dosage: 150 UG, UNK
  2. ONBREZ [Suspect]
     Dosage: 300 UG, UNK

REACTIONS (4)
  - TREMOR [None]
  - DRUG INEFFECTIVE [None]
  - ARRHYTHMIA [None]
  - DYSPNOEA [None]
